FAERS Safety Report 10017569 (Version 1)
Quarter: 2014Q1

REPORT INFORMATION
  Report Type: Spontaneous
  Country: US (occurrence: US)
  Receive Date: 20140318
  Receipt Date: 20140318
  Transmission Date: 20141002
  Serious: No
  Sender: FDA-Public Use
  Company Number: US-BRISTOL-MYERS SQUIBB COMPANY-17354440

PATIENT
  Age: 66 Year
  Sex: Male
  Weight: 70.75 kg

DRUGS (1)
  1. ERBITUX [Suspect]
     Indication: THROAT CANCER
     Dates: start: 2013

REACTIONS (1)
  - Rash [Recovering/Resolving]
